FAERS Safety Report 17512055 (Version 2)
Quarter: 2020Q2

REPORT INFORMATION
  Report Type: Report from Study
  Country: CO (occurrence: CO)
  Receive Date: 20200307
  Receipt Date: 20200420
  Transmission Date: 20200713
  Serious: Yes (Hospitalization, Other)
  Sender: FDA-Public Use
  Company Number: CO-AMGEN-COLSL2020037544

PATIENT
  Age: 54 Year
  Sex: Male

DRUGS (1)
  1. KYPROLIS [Suspect]
     Active Substance: CARFILZOMIB
     Indication: PLASMA CELL MYELOMA
     Dosage: 60 MILLIGRAM
     Route: 042
     Dates: start: 20191127, end: 20200306

REACTIONS (4)
  - Arrhythmia [Recovering/Resolving]
  - Pain in extremity [Recovering/Resolving]
  - Depression [Not Recovered/Not Resolved]
  - Back pain [Recovering/Resolving]
